FAERS Safety Report 10217174 (Version 1)
Quarter: 2014Q2

REPORT INFORMATION
  Report Type: Spontaneous
  Country: US (occurrence: US)
  Receive Date: 20140604
  Receipt Date: 20140604
  Transmission Date: 20141212
  Serious: Yes (Hospitalization)
  Sender: FDA-Public Use
  Company Number: PHHY2014US064477

PATIENT
  Age: 66 Year
  Sex: Female

DRUGS (17)
  1. FLUCONAZOLE [Suspect]
     Indication: FUNGAL INFECTION
     Dosage: 200 MG, DAILY
     Route: 048
  2. VANCOMYCIN [Concomitant]
  3. AZTREONAM [Concomitant]
  4. TIGECYCLINE [Concomitant]
     Dosage: 50 MG, EVERY 12 HOURS
  5. METHOTREXATE [Concomitant]
     Dosage: 7.5 MG, FOR 7 DAYS
     Route: 048
  6. PREDNISONE [Concomitant]
     Dosage: 5 MG, BID
     Route: 048
  7. FUROSEMIDE [Concomitant]
     Dosage: 40 MG, DAILY
     Route: 048
  8. ALPRAZOLAM [Concomitant]
     Dosage: 0.5 MG, BID
  9. CARISOPRODOL [Concomitant]
     Dosage: 350 MG, QID
     Route: 048
  10. FOLIC ACID [Concomitant]
     Dosage: 2 MG, DAILY
     Route: 048
  11. ESTROGEN [Concomitant]
     Dosage: 0.9 MG, DAILY
     Route: 048
  12. TIOTROPIUM [Concomitant]
     Route: 048
  13. OMEPRAZOLE [Concomitant]
     Dosage: 20 MG, BID
     Route: 048
  14. SUMATRIPTAN [Concomitant]
     Indication: PAIN
  15. HYDROCODONE [Concomitant]
     Indication: PAIN
  16. ACETAMINOPHEN [Concomitant]
     Indication: PAIN
  17. METHYLPREDNISOLONE [Concomitant]
     Dosage: 125 MG, UNK

REACTIONS (6)
  - Bone marrow failure [Recovered/Resolved]
  - Haemodynamic instability [Recovered/Resolved]
  - Agranulocytosis [Recovered/Resolved]
  - White blood cell count decreased [Recovered/Resolved]
  - Platelet count decreased [Recovered/Resolved]
  - Thrombocytopenia [Recovered/Resolved]
